FAERS Safety Report 23148654 (Version 2)
Quarter: 2023Q4

REPORT INFORMATION
  Report Type: Spontaneous
  Country: US (occurrence: US)
  Receive Date: 20231106
  Receipt Date: 20231127
  Transmission Date: 20240110
  Serious: Yes (Other)
  Sender: FDA-Public Use
  Company Number: US-BAYER-2023A152936

PATIENT
  Sex: Female

DRUGS (1)
  1. CLIMARA [Suspect]
     Active Substance: ESTRADIOL

REACTIONS (5)
  - Immunodeficiency [None]
  - Device adhesion issue [None]
  - Wrong technique in product usage process [None]
  - General physical health deterioration [None]
  - Headache [None]
